FAERS Safety Report 4515025-5 (Version None)
Quarter: 2004Q4

REPORT INFORMATION
  Report Type: 
  Country: None (occurrence: None)
  Receive Date: 20041129
  Receipt Date: 20041129
  Transmission Date: 20050328
  Serious: Yes (Hospitalization)
  Sender: FDA-Public Use
  Company Number: None

PATIENT
  Age: 59 Year
  Sex: Female

DRUGS (1)
  1. AVINZA [Suspect]
     Indication: DIABETIC NEUROPATHY
     Dates: start: 20041026, end: 20041028

REACTIONS (1)
  - MENTAL STATUS CHANGES [None]
